FAERS Safety Report 5480897-7 (Version None)
Quarter: 2007Q4

REPORT INFORMATION
  Report Type: 
  Country: None (occurrence: None)
  Receive Date: 20071009
  Receipt Date: 20070927
  Transmission Date: 20080405
  Serious: Yes (Hospitalization)
  Sender: FDA-Public Use
  Company Number: CA-PFIZER INC-2007031574

PATIENT
  Sex: Male
  Weight: 87 kg

DRUGS (3)
  1. SU-011,248 [Suspect]
     Indication: METASTATIC RENAL CELL CARCINOMA
     Route: 048
     Dates: start: 20060629, end: 20070418
  2. TYLENOL (CAPLET) [Concomitant]
     Indication: HEADACHE
  3. ZITHROMAX [Concomitant]
     Indication: COUGH
     Dates: start: 20070212, end: 20070216

REACTIONS (1)
  - CEREBROVASCULAR ACCIDENT [None]
